FAERS Safety Report 7472314-2 (Version None)
Quarter: 2011Q2

REPORT INFORMATION
  Report Type: 
  Country: None (occurrence: None)
  Receive Date: 20110502
  Receipt Date: 20110418
  Transmission Date: 20111010
  Serious: Yes (Hospitalization)
  Sender: FDA-Public Use
  Company Number: 2011MA004592

PATIENT
  Age: 79 Year
  Sex: Male

DRUGS (2)
  1. OPTIRAY 350 [Suspect]
     Indication: COMPUTERISED TOMOGRAM
     Dates: start: 20100804
  2. RAMIPRIL [Suspect]

REACTIONS (8)
  - RENAL FAILURE CHRONIC [None]
  - DEHYDRATION [None]
  - CONDITION AGGRAVATED [None]
  - DIALYSIS [None]
  - SURGERY [None]
  - INJURY [None]
  - PNEUMONIA [None]
  - URINARY RETENTION [None]
